FAERS Safety Report 9903261 (Version 2)
Quarter: 2014Q3

REPORT INFORMATION
  Report Type: Spontaneous
  Country: US (occurrence: US)
  Receive Date: 20140217
  Receipt Date: 20140717
  Transmission Date: 20150326
  Serious: Yes (Hospitalization, Other)
  Sender: FDA-Public Use
  Company Number: US-009507513-1402USA005926

PATIENT
  Sex: Female

DRUGS (2)
  1. NUVARING [Suspect]
     Active Substance: ETHINYL ESTRADIOL\ETONOGESTREL
     Indication: ENDOMETRIOSIS
     Dosage: UNK
     Route: 067
     Dates: end: 20120719
  2. NUVARING [Suspect]
     Active Substance: ETHINYL ESTRADIOL\ETONOGESTREL
     Indication: MENORRHAGIA

REACTIONS (11)
  - Pelvic pain [Unknown]
  - Headache [Unknown]
  - Muscle spasms [Unknown]
  - Adenomyosis [Unknown]
  - Ovarian cyst [Unknown]
  - Cystitis interstitial [Unknown]
  - Off label use [Unknown]
  - Leukocytosis [Unknown]
  - Dyspareunia [Unknown]
  - Pulmonary embolism [Unknown]
  - Loop electrosurgical excision procedure [Unknown]

NARRATIVE: CASE EVENT DATE: 20120210
